FAERS Safety Report 7480888-0 (Version None)
Quarter: 2011Q2

REPORT INFORMATION
  Report Type: 
  Country: None (occurrence: None)
  Receive Date: 20110506
  Receipt Date: 20110421
  Transmission Date: 20111010
  Serious: Yes (Hospitalization)
  Sender: FDA-Public Use
  Company Number: 031482

PATIENT
  Sex: Female
  Weight: 72 kg

DRUGS (1)
  1. CIMZIA [Suspect]
     Indication: CROHN'S DISEASE
     Dosage: 400 MG NUMBER OF DOSES RECEIVED: 33 SUBCUTANEOUS
     Route: 058
     Dates: start: 20081201

REACTIONS (3)
  - CONDITION AGGRAVATED [None]
  - COLITIS [None]
  - ABDOMINAL PAIN LOWER [None]
